FAERS Safety Report 5717787-8 (Version None)
Quarter: 2008Q2

REPORT INFORMATION
  Report Type: 
  Country: None (occurrence: None)
  Receive Date: 20080425
  Receipt Date: 20080415
  Transmission Date: 20081010
  Serious: Yes (Hospitalization)
  Sender: FDA-Public Use
  Company Number: US-AMGEN-QUU274711

PATIENT
  Sex: Female

DRUGS (2)
  1. ENBREL [Suspect]
     Indication: RHEUMATOID ARTHRITIS
     Route: 058
     Dates: start: 20050209
  2. PLAQUENIL [Concomitant]

REACTIONS (3)
  - BRONCHITIS [None]
  - CEREBROVASCULAR ACCIDENT [None]
  - PELVIC FRACTURE [None]
